FAERS Safety Report 8016920-5 (Version None)
Quarter: 2012Q1

REPORT INFORMATION
  Report Type: 
  Country: None (occurrence: None)
  Receive Date: 20120102
  Receipt Date: 20111222
  Transmission Date: 20120608
  Serious: Yes (Other)
  Sender: FDA-Public Use
  Company Number: PHHO2011NZ021399

PATIENT
  Sex: Male
  Weight: 104 kg

DRUGS (7)
  1. ASPIRIN [Concomitant]
     Dosage: 100 MG, QD
  2. METOPROLOL [Concomitant]
     Dosage: 47.5 MG DAILY
  3. TASIGNA [Suspect]
     Indication: CHRONIC MYELOID LEUKAEMIA
     Dosage: 800 MG, UNK
     Route: 048
     Dates: start: 20080812
  4. SIMVASTATIN [Concomitant]
     Dosage: 40 MG, QD
  5. CILAZAPRIL [Concomitant]
     Dosage: 1 MG, UNK
     Dates: end: 20100111
  6. CILAZAPRIL [Concomitant]
     Dosage: 2.5 MG, UNK
     Dates: start: 20100111
  7. AMOXICILLIN [Concomitant]
     Indication: PROPHYLAXIS
     Dosage: 500 MG, TID
     Route: 048
     Dates: start: 20110909, end: 20110916

REACTIONS (1)
  - PERIPHERAL ISCHAEMIA [None]
